FAERS Safety Report 18469507 (Version 1)
Quarter: 2020Q4

REPORT INFORMATION
  Report Type: Spontaneous
  Country: US (occurrence: US)
  Receive Date: 20201105
  Receipt Date: 20201105
  Transmission Date: 20210114
  Serious: No
  Sender: FDA-Public Use
  Company Number: US-KVK-TECH, INC-2093639

PATIENT
  Sex: Male

DRUGS (1)
  1. CHLORPHENIRAMINE MALEATE. [Suspect]
     Active Substance: CHLORPHENIRAMINE MALEATE
     Indication: UPPER-AIRWAY COUGH SYNDROME
     Route: 048
     Dates: start: 202010, end: 202010

REACTIONS (1)
  - Somnolence [Recovered/Resolved]

NARRATIVE: CASE EVENT DATE: 202010
